FAERS Safety Report 7767858-X (Version None)
Quarter: 2011Q3

REPORT INFORMATION
  Report Type: 
  Country: None (occurrence: None)
  Receive Date: 20110922
  Receipt Date: 20110616
  Transmission Date: 20111222
  Serious: No
  Sender: FDA-Public Use
  Company Number: US-ASTRAZENECA-2011SE36745

PATIENT
  Age: 36 Year
  Sex: Female
  Weight: 55.3 kg

DRUGS (4)
  1. LUNESTA [Concomitant]
     Indication: INSOMNIA
  2. VALIUM [Concomitant]
     Indication: ANXIETY
  3. SEROQUEL [Suspect]
     Indication: BIPOLAR DISORDER
     Route: 048
     Dates: start: 20050101, end: 20110612
  4. LAMICTAL [Concomitant]

REACTIONS (5)
  - INSOMNIA [None]
  - INFLUENZA LIKE ILLNESS [None]
  - DRUG DOSE OMISSION [None]
  - MALAISE [None]
  - HEADACHE [None]
